FAERS Safety Report 10451842 (Version 1)
Quarter: 2014Q3

REPORT INFORMATION
  Report Type: Spontaneous
  Country: US (occurrence: US)
  Receive Date: 20140915
  Receipt Date: 20140915
  Transmission Date: 20150326
  Serious: No
  Sender: FDA-Public Use
  Company Number: US-BIOGENIDEC-2014BI092248

PATIENT
  Age: 60 Year
  Sex: Male

DRUGS (3)
  1. AVONEX [Suspect]
     Active Substance: INTERFERON BETA-1A
     Indication: MULTIPLE SCLEROSIS
     Route: 030
     Dates: start: 20091224
  2. AVONEX [Suspect]
     Active Substance: INTERFERON BETA-1A
     Indication: MULTIPLE SCLEROSIS
     Route: 030
  3. AVONEX [Suspect]
     Active Substance: INTERFERON BETA-1A
     Indication: MULTIPLE SCLEROSIS
     Route: 030
     Dates: start: 20091225

REACTIONS (8)
  - Arthralgia [Unknown]
  - Drug dose omission [Recovered/Resolved]
  - Inappropriate schedule of drug administration [Unknown]
  - Musculoskeletal disorder [Not Recovered/Not Resolved]
  - Lymphoedema [Not Recovered/Not Resolved]
  - Central nervous system lesion [Unknown]
  - Peripheral swelling [Not Recovered/Not Resolved]
  - Memory impairment [Unknown]

NARRATIVE: CASE EVENT DATE: 201408
